FAERS Safety Report 9675224 (Version 2)
Quarter: 2014Q1

REPORT INFORMATION
  Report Type: Spontaneous
  Country: US (occurrence: US)
  Receive Date: 20131107
  Receipt Date: 20140220
  Transmission Date: 20141002
  Serious: No
  Sender: FDA-Public Use
  Company Number: US-PFIZER INC-2013316201

PATIENT
  Age: 86 Year
  Sex: Female

DRUGS (7)
  1. CELEBREX [Suspect]
     Dosage: UNK
  2. GABAPENTIN [Suspect]
     Dosage: UNK
  3. DILAUDID [Suspect]
     Dosage: UNK
  4. FORTAZ [Suspect]
     Dosage: UNK
  5. FOSAMAX [Suspect]
     Dosage: UNK
  6. HYDROCHLOROTHIAZIDE/TRIAMTERENE [Suspect]
     Dosage: UNK
  7. FORTEO [Suspect]
     Dosage: UNK

REACTIONS (1)
  - Drug hypersensitivity [Unknown]
